FAERS Safety Report 8727211 (Version 2)
Quarter: 2015Q2

REPORT INFORMATION
  Report Type: Report from Study
  Country: US (occurrence: US)
  Receive Date: 20120816
  Receipt Date: 20150403
  Transmission Date: 20150821
  Serious: Yes (Hospitalization)
  Sender: FDA-Public Use
  Company Number: US-ROCHE-1101235

PATIENT
  Age: 41 Year
  Sex: Male

DRUGS (14)
  1. NITROGLYCERINE [Concomitant]
     Active Substance: NITROGLYCERIN
     Dosage: 12 CC PER HOUR
     Route: 065
  2. PETHIDINE HYDROCHLORIDE [Concomitant]
     Active Substance: MEPERIDINE
  3. NITROGLYCERINE [Concomitant]
     Active Substance: NITROGLYCERIN
     Dosage: 9 CC PER HOUR
     Route: 065
  4. PROMETHAZINE HYDROCHLORIDE. [Concomitant]
     Active Substance: PROMETHAZINE HYDROCHLORIDE
  5. ACTIVASE [Suspect]
     Active Substance: ALTEPLASE
     Dosage: 100 CC HOUR
     Route: 041
  6. HEPARIN SODIUM. [Concomitant]
     Active Substance: HEPARIN SODIUM
     Dosage: 20 CC PER HOUR
     Route: 041
  7. ACTIVASE [Suspect]
     Active Substance: ALTEPLASE
     Indication: ACUTE MYOCARDIAL INFARCTION
     Route: 040
  8. NITROGLYCERINE [Concomitant]
     Active Substance: NITROGLYCERIN
     Dosage: 15 CC PER HOUR
     Route: 065
  9. NITROGLYCERINE [Concomitant]
     Active Substance: NITROGLYCERIN
     Dosage: 18 CC PER HOUR
     Route: 065
  10. HEPARIN SODIUM. [Concomitant]
     Active Substance: HEPARIN SODIUM
     Route: 040
  11. NITROGLYCERINE [Concomitant]
     Active Substance: NITROGLYCERIN
     Dosage: 3 CC
     Route: 041
  12. HEPARIN SODIUM. [Concomitant]
     Active Substance: HEPARIN SODIUM
     Dosage: 25000 CC IN 500 CC DISTILLED WATER AT THE RATE OF 1000 CC PER HOUR
     Route: 041
  13. ACTIVASE [Suspect]
     Active Substance: ALTEPLASE
     Dosage: 15 CC PER HOUR
     Route: 041
  14. NITROGLYCERINE [Concomitant]
     Active Substance: NITROGLYCERIN
     Dosage: 6 CC PER HOUR
     Route: 065

REACTIONS (2)
  - Chest pain [Unknown]
  - Vomiting [Unknown]

NARRATIVE: CASE EVENT DATE: 19941115
